FAERS Safety Report 7505208-4 (Version None)
Quarter: 2011Q2

REPORT INFORMATION
  Report Type: 
  Country: None (occurrence: None)
  Receive Date: 20110526
  Receipt Date: 20110518
  Transmission Date: 20111010
  Serious: Yes (Death, Other)
  Sender: FDA-Public Use
  Company Number: JP-JNJFOC-20110403452

PATIENT
  Sex: Female
  Weight: 70 kg

DRUGS (15)
  1. DIAZEPAM [Concomitant]
     Indication: SEDATION
     Route: 048
     Dates: start: 20101013, end: 20110323
  2. FULMETA [Concomitant]
     Indication: RASH
     Route: 062
     Dates: start: 20110222, end: 20110308
  3. SEDATIVES [Concomitant]
     Route: 065
  4. HALCION [Concomitant]
     Indication: SLEEP DISORDER
     Route: 048
     Dates: start: 20100608, end: 20110323
  5. SILECE [Concomitant]
     Indication: SLEEP DISORDER
     Route: 048
     Dates: start: 20100608, end: 20110323
  6. FENTANYL-100 [Suspect]
     Route: 062
  7. NAUZELIN [Concomitant]
     Indication: ANTIEMETIC SUPPORTIVE CARE
     Route: 054
     Dates: start: 20100608, end: 20110323
  8. LOPERAMIDE HCL [Concomitant]
     Indication: DIARRHOEA
     Route: 048
     Dates: start: 20100830, end: 20110323
  9. AMITRIPTYLINE HCL [Concomitant]
     Indication: ANALGESIC THERAPY
     Route: 048
     Dates: start: 20100608, end: 20110323
  10. FENTANYL-100 [Suspect]
     Indication: PAIN IN EXTREMITY
     Dosage: APPLIED 7 50 UG/HR PATCHES
     Route: 062
     Dates: end: 20110405
  11. FENTANYL-100 [Suspect]
     Route: 062
  12. ANTIDEPRESSANTS [Concomitant]
     Route: 065
  13. ALPRAZOLAM [Concomitant]
     Indication: SEDATION
     Route: 048
     Dates: start: 20100608, end: 20110323
  14. AMOBAN [Concomitant]
     Indication: SLEEP DISORDER
     Route: 048
     Dates: start: 20100608, end: 20110323
  15. RINDERON-VG [Concomitant]
     Indication: RASH
     Route: 062
     Dates: start: 20100817, end: 20110323

REACTIONS (14)
  - DEATH [None]
  - SUICIDE ATTEMPT [None]
  - INADEQUATE ANALGESIA [None]
  - INAPPROPRIATE SCHEDULE OF DRUG ADMINISTRATION [None]
  - RESPIRATORY DEPRESSION [None]
  - DRUG PRESCRIBING ERROR [None]
  - COLITIS [None]
  - RIB FRACTURE [None]
  - PYREXIA [None]
  - PRODUCT QUALITY ISSUE [None]
  - OVERDOSE [None]
  - HYPERHIDROSIS [None]
  - FALL [None]
  - RESPIRATORY ARREST [None]
